FAERS Safety Report 18871630 (Version 1)
Quarter: 2021Q1

REPORT INFORMATION
  Report Type: Report from Study
  Country: KR (occurrence: KR)
  Receive Date: 20210210
  Receipt Date: 20210210
  Transmission Date: 20210420
  Serious: Yes (Other)
  Sender: FDA-Public Use
  Company Number: KR-ACCORD-217004

PATIENT
  Age: 41 Year
  Sex: Male

DRUGS (3)
  1. RISPERIDONE. [Interacting]
     Active Substance: RISPERIDONE
     Indication: SCHIZOPHRENIA
  2. CLOZAPINE. [Suspect]
     Active Substance: CLOZAPINE
     Indication: SCHIZOPHRENIA
  3. TRIHEXYPHENIDYL [Interacting]
     Active Substance: TRIHEXYPHENIDYL
     Indication: SCHIZOPHRENIA

REACTIONS (4)
  - Electrocardiogram QT prolonged [Unknown]
  - Hypocholesterolaemia [Unknown]
  - Weight increased [Unknown]
  - Drug interaction [Unknown]
